FAERS Safety Report 8234755-5 (Version None)
Quarter: 2012Q1

REPORT INFORMATION
  Report Type: 
  Country: None (occurrence: None)
  Receive Date: 20120326
  Receipt Date: 20120323
  Transmission Date: 20120608
  Serious: Yes (Hospitalization, Other)
  Sender: FDA-Public Use
  Company Number: US-BAYER-2012-011177

PATIENT
  Age: 63 Year
  Sex: Male
  Weight: 109 kg

DRUGS (8)
  1. GLIPIZIDE [Concomitant]
     Indication: DIABETES MELLITUS
     Dosage: 10 UNK, QD
  2. PLAVIX [Concomitant]
     Indication: CARDIAC DISORDER
     Dosage: 75 MG, QD
     Dates: start: 20120119
  3. BETASERON [Suspect]
     Indication: MULTIPLE SCLEROSIS
     Dosage: 0.3 MG, QOD
     Route: 058
     Dates: start: 20080601
  4. PROTONIX [Concomitant]
     Dosage: 40 UNK, QD
  5. ASPIRIN [Concomitant]
     Indication: CARDIAC DISORDER
     Dosage: 325 MG, QD
     Dates: start: 20120119
  6. SYNTHROID [Concomitant]
     Indication: THYROID DISORDER
     Dosage: 175 MG, QD
  7. METOPROLOL SUCCINATE [Concomitant]
     Indication: CARDIAC DISORDER
     Dosage: 25 UNK, BID
     Dates: start: 20120119
  8. LISINOPRIL [Concomitant]
     Indication: CARDIAC DISORDER
     Dosage: 10 UNK, QD
     Dates: start: 20120119

REACTIONS (1)
  - MYOCARDIAL INFARCTION [None]
